FAERS Safety Report 9005307 (Version 1)
Quarter: 2013Q1

REPORT INFORMATION
  Report Type: Spontaneous
  Country: IT (occurrence: IT)
  Receive Date: 20130108
  Receipt Date: 20130108
  Transmission Date: 20140127
  Serious: Yes (Death, Other)
  Sender: FDA-Public Use
  Company Number: IT-ELI_LILLY_AND_COMPANY-IT201301001673

PATIENT
  Sex: 0

DRUGS (5)
  1. GEMCITABINE HYDROCHLORIDE [Suspect]
     Indication: SMALL CELL LUNG CANCER
     Dosage: 1000 MG/M2, OTHER
     Route: 042
  2. PACLITAXEL [Concomitant]
     Indication: SMALL CELL LUNG CANCER
     Dosage: 135 MG/M2, OTHER
  3. DEXAMETHASONE [Concomitant]
     Dosage: 20 MG, OTHER
  4. ORPHENADRINE [Concomitant]
     Dosage: 40 MG, OTHER
  5. RANITIDINE [Concomitant]
     Dosage: 50 MG, OTHER

REACTIONS (1)
  - Febrile neutropenia [Fatal]
